FAERS Safety Report 24292284 (Version 1)
Quarter: 2024Q3

REPORT INFORMATION
  Report Type: Other
  Country: CA (occurrence: CA)
  Receive Date: 20240906
  Receipt Date: 20240906
  Transmission Date: 20241016
  Serious: Yes (Other)
  Sender: MEDEXUS PHARMA
  Company Number: CA-MEDEXUS PHARMA, INC.-2024MED00357

PATIENT
  Age: 70 Year
  Sex: Male

DRUGS (2)
  1. METHOTREXATE [Suspect]
     Active Substance: METHOTREXATE
  2. ABATACEPT [Suspect]
     Active Substance: ABATACEPT
     Route: 017

REACTIONS (5)
  - Cardiac tamponade [Unknown]
  - Haematological malignancy [Unknown]
  - Lymphoplasmacytoid lymphoma/immunocytoma [Unknown]
  - Neoplasm malignant [Unknown]
  - Plasma cell myeloma [Unknown]
